FAERS Safety Report 8936985 (Version 1)
Quarter: 2012Q4

REPORT INFORMATION
  Report Type: 
  Country: US (occurrence: US)
  Receive Date: 20121130
  Receipt Date: 20121130
  Transmission Date: 20130627
  Serious: Yes (Hospitalization)
  Sender: FDA-Public Use
  Company Number: US-AMGEN-USASP2012076108

PATIENT
  Age: 69 Year
  Sex: Male

DRUGS (1)
  1. ENBREL [Suspect]
     Indication: PSORIASIS
     Dosage: 50 mg, 2 times/wk
     Dates: start: 20100930

REACTIONS (12)
  - Cerebral haemorrhage [Unknown]
  - Cerebrovascular accident [Unknown]
  - Ascites [Recovered/Resolved]
  - Atrial fibrillation [Unknown]
  - Renal failure [Unknown]
  - Head injury [Unknown]
  - Loss of consciousness [Unknown]
  - Eye injury [Unknown]
  - Eye swelling [Unknown]
  - Cardiac failure [Unknown]
  - Dyspnoea [Unknown]
  - Psoriasis [Unknown]
